FAERS Safety Report 8193742-6 (Version None)
Quarter: 2012Q1

REPORT INFORMATION
  Report Type: 
  Country: None (occurrence: None)
  Receive Date: 20120308
  Receipt Date: 20120227
  Transmission Date: 20120608
  Serious: Yes (Hospitalization)
  Sender: FDA-Public Use
  Company Number: ES-JNJFOC-20120213486

PATIENT
  Age: 79 Year
  Sex: Male

DRUGS (3)
  1. ACECLOFENAC [Suspect]
     Indication: RHEUMATOID ARTHRITIS
     Route: 048
     Dates: start: 19950101
  2. GOLIMUMAB [Suspect]
     Indication: RHEUMATOID ARTHRITIS
     Route: 058
     Dates: start: 20110920
  3. GOLIMUMAB [Suspect]
     Route: 058
     Dates: start: 20101123

REACTIONS (1)
  - MYOCARDIAL INFARCTION [None]
